FAERS Safety Report 12552932 (Version 2)
Quarter: 2016Q3

REPORT INFORMATION
  Report Type: Spontaneous
  Country: US (occurrence: US)
  Receive Date: 20160713
  Receipt Date: 20160718
  Transmission Date: 20161109
  Serious: No
  Sender: FDA-Public Use
  Company Number: US-HORIZON-RAV-0131-2016

PATIENT
  Age: 40 Year
  Sex: Female

DRUGS (3)
  1. CITRULLINE [Concomitant]
     Active Substance: CITRULLINE
  2. RAVICTI [Suspect]
     Active Substance: GLYCEROL PHENYLBUTYRATE
     Indication: ORNITHINE TRANSCARBAMOYLASE DEFICIENCY
     Dosage: 5 ML TID
     Dates: start: 20160630
  3. L-CARNITINE [Concomitant]
     Active Substance: LEVOCARNITINE

REACTIONS (2)
  - Insomnia [Unknown]
  - Snoring [Unknown]
